FAERS Safety Report 6699819-6 (Version None)
Quarter: 2010Q2

REPORT INFORMATION
  Report Type: 
  Country: None (occurrence: None)
  Receive Date: 20100428
  Receipt Date: 20091109
  Transmission Date: 20101027
  Serious: No
  Sender: FDA-Public Use
  Company Number: A0835466A

PATIENT
  Age: 83 Year
  Sex: Female
  Weight: 50 kg

DRUGS (4)
  1. LUXIQ [Suspect]
     Route: 061
     Dates: start: 20091001
  2. ZOLOFT [Concomitant]
     Indication: RESTLESS LEGS SYNDROME
     Route: 048
  3. CLONAZEPAM [Concomitant]
     Indication: RESTLESS LEGS SYNDROME
     Route: 048
  4. FEXOFENADINE [Concomitant]
     Indication: SEASONAL ALLERGY

REACTIONS (2)
  - ALOPECIA [None]
  - WEIGHT INCREASED [None]
